FAERS Safety Report 14199950 (Version 1)
Quarter: 2017Q4

REPORT INFORMATION
  Report Type: Spontaneous
  Country: US (occurrence: US)
  Receive Date: 20171117
  Receipt Date: 20171117
  Transmission Date: 20180321
  Serious: Yes (Hospitalization)
  Sender: FDA-Public Use
  Company Number: US-MYLANLABS-2017M1072420

PATIENT
  Age: 49 Year
  Sex: Female

DRUGS (2)
  1. PACLITAXEL. [Suspect]
     Active Substance: PACLITAXEL
     Indication: OVARIAN EPITHELIAL CANCER METASTATIC
     Dosage: COMPLETED 5 CYCLES; LATER ALSO RECEIVED 2 MORE CYCLES
     Route: 042
  2. CARBOPLATIN. [Suspect]
     Active Substance: CARBOPLATIN
     Indication: OVARIAN EPITHELIAL CANCER METASTATIC
     Dosage: COMPLETED 5 CYCLES; LATER ALSO RECEIVED 2 MORE CYCLES
     Route: 042

REACTIONS (2)
  - Groin abscess [Unknown]
  - Neuropathy peripheral [Unknown]
